FAERS Safety Report 9543259 (Version 8)
Quarter: 2013Q4

REPORT INFORMATION
  Report Type: Spontaneous
  Country: GB (occurrence: GB)
  Receive Date: 20130923
  Receipt Date: 20131231
  Transmission Date: 20140711
  Serious: Yes (Life-Threatening, Hospitalization, Other)
  Sender: FDA-Public Use
  Company Number: GB-ABBVIE-13P-167-1127800-00

PATIENT
  Age: 48 Year
  Sex: Male
  Weight: 61 kg

DRUGS (3)
  1. HUMIRA [Suspect]
     Indication: PSORIASIS
     Route: 058
     Dates: start: 2010
  2. HUMIRA [Suspect]
     Route: 058
     Dates: start: 20120222, end: 20130717
  3. GROWTH FACTOR [Concomitant]
     Indication: PRODUCT USED FOR UNKNOWN INDICATION

REACTIONS (19)
  - Shock [Unknown]
  - Hodgkin^s disease stage II [Unknown]
  - Hodgkin^s disease stage II [Unknown]
  - Neck mass [Unknown]
  - Neck mass [Unknown]
  - Pain [Unknown]
  - Product contamination [Unknown]
  - Scar [Unknown]
  - Immunosuppression [Unknown]
  - Lymphoproliferative disorder [Unknown]
  - Lymphoma [Unknown]
  - Psoriasis [Unknown]
  - Quality of life decreased [Unknown]
  - Pain in jaw [Unknown]
  - Lymphadenopathy [Unknown]
  - Lymphadenopathy [Unknown]
  - Lymphadenopathy [Unknown]
  - Swelling [Unknown]
  - Neutropenia [Unknown]
